FAERS Safety Report 5878030-2 (Version None)
Quarter: 2008Q3

REPORT INFORMATION
  Report Type: 
  Country: None (occurrence: None)
  Receive Date: 20080911
  Receipt Date: 20080827
  Transmission Date: 20090109
  Serious: Yes (Hospitalization, Other)
  Sender: FDA-Public Use
  Company Number: US-JNJFOC-20080901433

PATIENT
  Sex: Male
  Weight: 105.7 kg

DRUGS (25)
  1. LEVAQUIN [Suspect]
     Indication: DRUG USE FOR UNKNOWN INDICATION
     Route: 048
  2. PREDNISONE TAB [Concomitant]
  3. PREDNISONE TAB [Concomitant]
  4. REVIMID [Concomitant]
     Route: 048
  5. DOXIL [Concomitant]
  6. DEXAMETHASONE [Concomitant]
  7. ZOMETA [Concomitant]
  8. ACYCLOVIR [Concomitant]
  9. BACTRIM DS [Concomitant]
  10. PANTAPRAZOLE [Concomitant]
  11. DIGOXIN [Concomitant]
  12. COUMADIN [Concomitant]
  13. DILTIAZEM HCL [Concomitant]
  14. ALPRAZOLAM [Concomitant]
  15. FLUCONAZOLE [Concomitant]
  16. PROTONIX [Concomitant]
  17. XANAX [Concomitant]
  18. TESSALON [Concomitant]
  19. NORVASC [Concomitant]
     Route: 065
  20. DIOVAN [Concomitant]
     Route: 065
  21. INDAPAMIDE [Concomitant]
     Route: 065
  22. MULTI-VITAMINS [Concomitant]
     Route: 065
  23. CIPRO [Concomitant]
     Route: 065
  24. FLAGYL [Concomitant]
     Route: 065
  25. AUGMENTIN '125' [Concomitant]
     Route: 065

REACTIONS (3)
  - ATRIAL FIBRILLATION [None]
  - ELECTROCARDIOGRAM QT PROLONGED [None]
  - PNEUMOCYSTIS JIROVECI PNEUMONIA [None]
